FAERS Safety Report 9270622 (Version 1)
Quarter: 2013Q2

REPORT INFORMATION
  Report Type: Spontaneous
  Country: US (occurrence: US)
  Receive Date: 20130505
  Receipt Date: 20130505
  Transmission Date: 20140414
  Serious: No
  Sender: FDA-Public Use
  Company Number: US-009507513-1305USA000531

PATIENT
  Age: 60 Year
  Sex: Male

DRUGS (1)
  1. INTRONA [Suspect]
     Indication: MALIGNANT MELANOMA
     Dosage: SOLUTION 18 MIU MULTIDOSE, 6 MIU/ML, IM, SC/EVERY 5 DAYS
     Route: 058
     Dates: start: 20130415

REACTIONS (1)
  - Erythema multiforme [Unknown]
